FAERS Safety Report 4641124-3 (Version None)
Quarter: 2005Q2

REPORT INFORMATION
  Report Type: 
  Country: None (occurrence: None)
  Receive Date: 20050419
  Receipt Date: 20050419
  Transmission Date: 20051028
  Serious: Yes (Death)
  Sender: FDA-Public Use
  Company Number: None

PATIENT
  Sex: Male
  Weight: 105.7 kg

DRUGS (1)
  1. GEMCITABINE [Suspect]
     Dosage: 100 MG/M2 OVER 30 MIN Q 28 DAYS UNLESS DISEASE PROGRESSION OR ADVERSE EVENTS PROHIBITS FURTHER THERA
     Route: 042
     Dates: start: 20050222

REACTIONS (5)
  - ASTHENIA [None]
  - CONFUSIONAL STATE [None]
  - INSOMNIA [None]
  - ORAL INTAKE REDUCED [None]
  - TREATMENT NONCOMPLIANCE [None]
